FAERS Safety Report 7135557-3 (Version None)
Quarter: 2010Q4

REPORT INFORMATION
  Report Type: 
  Country: None (occurrence: None)
  Receive Date: 20101203
  Receipt Date: 20091112
  Transmission Date: 20110411
  Serious: No
  Sender: FDA-Public Use
  Company Number: US-BRISTOL-MYERS SQUIBB COMPANY-14857429

PATIENT
  Age: 85 Year
  Sex: Female

DRUGS (1)
  1. KENALOG [Suspect]
     Dosage: THERAPY DURATION=3DAYS,3TIMES A DAY:ONE TIME BEFORE BEDTIME
     Route: 061
     Dates: start: 20090901

REACTIONS (1)
  - HYPOAESTHESIA [None]
